FAERS Safety Report 18905651 (Version 1)
Quarter: 2021Q1

REPORT INFORMATION
  Report Type: Report from Study
  Country: US (occurrence: US)
  Receive Date: 20210217
  Receipt Date: 20210217
  Transmission Date: 20210420
  Serious: No
  Sender: FDA-Public Use
  Company Number: US-BIOVITRUM-2020US6170

PATIENT
  Age: 41 Year
  Sex: Female

DRUGS (1)
  1. KINERET [Suspect]
     Active Substance: ANAKINRA
     Indication: AUTOINFLAMMATORY DISEASE
     Route: 058
     Dates: start: 20201021

REACTIONS (7)
  - Wound secretion [Unknown]
  - Injection site pain [Unknown]
  - Blood albumin decreased [Unknown]
  - White blood cell count increased [Unknown]
  - Diarrhoea [Unknown]
  - Skin infection [Unknown]
  - Off label use [Not Recovered/Not Resolved]

NARRATIVE: CASE EVENT DATE: 20201021
